FAERS Safety Report 14527601 (Version 2)
Quarter: 2018Q2

REPORT INFORMATION
  Report Type: Spontaneous
  Country: US (occurrence: US)
  Receive Date: 20180213
  Receipt Date: 20180521
  Transmission Date: 20180711
  Serious: No
  Sender: FDA-Public Use
  Company Number: US-PFIZER INC-2018061784

PATIENT
  Age: 65 Year
  Sex: Female

DRUGS (2)
  1. LETROZOLE. [Concomitant]
     Active Substance: LETROZOLE
     Indication: BREAST CANCER STAGE IV
     Dosage: UNK
  2. IBRANCE [Suspect]
     Active Substance: PALBOCICLIB
     Indication: BREAST CANCER STAGE IV
     Dosage: 125 MG, CYCLIC, (21 DAYS ON, 1 WEEK OFF/ 125 MG DAILY)

REACTIONS (6)
  - Product quality issue [Unknown]
  - Neoplasm progression [Not Recovered/Not Resolved]
  - Poor quality drug administered [Unknown]
  - Discomfort [Unknown]
  - Product physical issue [Unknown]
  - Product storage error [Unknown]
